FAERS Safety Report 10932830 (Version 1)
Quarter: 2015Q1

REPORT INFORMATION
  Report Type: Spontaneous
  Country: US (occurrence: None)
  Receive Date: 20150319
  Receipt Date: 20150319
  Transmission Date: 20150721
  Serious: Yes (Life-Threatening, Hospitalization, Other)
  Sender: FDA-Public Use
  Company Number: None

PATIENT
  Age: 48 Year
  Sex: Female

DRUGS (12)
  1. DIVALPROEX [Concomitant]
     Active Substance: DIVALPROEX SODIUM
  2. LEVOBUNOTOLOL [Concomitant]
  3. CLONAZEPAM. [Concomitant]
     Active Substance: CLONAZEPAM
  4. LISINOPRIL. [Concomitant]
     Active Substance: LISINOPRIL
  5. LAVASTATIN [Concomitant]
  6. TEMAZEPAM. [Concomitant]
     Active Substance: TEMAZEPAM
  7. VITAMIN D [Concomitant]
     Active Substance: CHOLECALCIFEROL
  8. KNEE REPLACEMENT DEVICE [Concomitant]
  9. NAPROXEN. [Concomitant]
     Active Substance: NAPROXEN
  10. LITHIUM CARB 200 MG CAP CAM WALMART 205-631-5961) [Suspect]
     Active Substance: LITHIUM CARBONATE
     Indication: BIPOLAR DISORDER
     Dosage: BY MOUTH
     Dates: start: 200801, end: 20140107
  11. PRILOSEC [Concomitant]
     Active Substance: OMEPRAZOLE MAGNESIUM
  12. MULTIVITAMIN [Concomitant]
     Active Substance: VITAMINS

REACTIONS (13)
  - Faecal incontinence [None]
  - Confusional state [None]
  - Renal impairment [None]
  - Gait disturbance [None]
  - Activities of daily living impaired [None]
  - Hypophagia [None]
  - Hypertension [None]
  - Tremor [None]
  - Dysarthria [None]
  - Dehydration [None]
  - Fall [None]
  - Antipsychotic drug level increased [None]
  - Urinary incontinence [None]

NARRATIVE: CASE EVENT DATE: 20140107
